FAERS Safety Report 9109595 (Version 1)
Quarter: 2013Q1

REPORT INFORMATION
  Report Type: Spontaneous
  Country: US (occurrence: US)
  Receive Date: 20130222
  Receipt Date: 20130222
  Transmission Date: 20140127
  Serious: Yes (Other)
  Sender: FDA-Public Use
  Company Number: US-TEVA-354127USA

PATIENT
  Sex: 0

DRUGS (1)
  1. TREANDA [Suspect]
     Dosage: 100 MG/M2
     Route: 042

REACTIONS (1)
  - Anaphylactic reaction [Unknown]
